FAERS Safety Report 6600698-3 (Version None)
Quarter: 2010Q1

REPORT INFORMATION
  Report Type: 
  Country: None (occurrence: None)
  Receive Date: 20100223
  Receipt Date: 20100223
  Transmission Date: 20100710
  Serious: No
  Sender: FDA-Public Use
  Company Number: None

PATIENT
  Age: 63 Year
  Sex: Female
  Weight: 72.5755 kg

DRUGS (6)
  1. GEODON [Suspect]
     Indication: DEPRESSION
     Dosage: 1 PILL EVERY NIGHT
     Dates: start: 20100105, end: 20100111
  2. DILANTIN [Concomitant]
  3. MORPHINE [Concomitant]
  4. VICODIN ES [Concomitant]
  5. LEVOTHYROXINE [Concomitant]
  6. FLONAISE [Concomitant]

REACTIONS (2)
  - ABDOMINAL DISCOMFORT [None]
  - MALAISE [None]
